FAERS Safety Report 10522940 (Version 2)
Quarter: 2014Q4

REPORT INFORMATION
  Report Type: Spontaneous
  Country: US (occurrence: US)
  Receive Date: 20141016
  Receipt Date: 20141016
  Transmission Date: 20150528
  Serious: Yes (Hospitalization, Other)
  Sender: FDA-Public Use
  Company Number: US-GLAXOSMITHKLINE-A0870859A

PATIENT
  Sex: Female

DRUGS (1)
  1. AVANDIA [Suspect]
     Active Substance: ROSIGLITAZONE MALEATE
     Indication: TYPE 2 DIABETES MELLITUS
     Dosage: 8 MG, UNK
     Route: 048
     Dates: start: 19991109, end: 20080603

REACTIONS (12)
  - Pericardial effusion [Unknown]
  - Mitral valve disease [Unknown]
  - Coronary artery disease [Unknown]
  - Myocardial infarction [Unknown]
  - Cardiogenic shock [Unknown]
  - Pulmonary oedema [Unknown]
  - Cardiomyopathy [Unknown]
  - Cardiac failure congestive [Not Recovered/Not Resolved]
  - Supraventricular tachycardia [Unknown]
  - Pleural effusion [Unknown]
  - Atrial fibrillation [Unknown]
  - Catheterisation cardiac [Unknown]

NARRATIVE: CASE EVENT DATE: 2001
